FAERS Safety Report 17190511 (Version 1)
Quarter: 2019Q4

REPORT INFORMATION
  Report Type: Spontaneous
  Country: CN (occurrence: CN)
  Receive Date: 20191223
  Receipt Date: 20191223
  Transmission Date: 20200122
  Serious: Yes (Hospitalization)
  Sender: FDA-Public Use
  Company Number: CN-GLAXOSMITHKLINE-CN2019APC232484

PATIENT

DRUGS (1)
  1. LAMICTAL [Suspect]
     Active Substance: LAMOTRIGINE
     Indication: SEIZURE
     Dosage: 1 DF, QD
     Route: 048
     Dates: start: 20191206, end: 20191216

REACTIONS (5)
  - Pyrexia [Recovering/Resolving]
  - Rash [Recovering/Resolving]
  - Condition aggravated [Unknown]
  - Drug hypersensitivity [Unknown]
  - Drug eruption [Recovering/Resolving]

NARRATIVE: CASE EVENT DATE: 20191216
